FAERS Safety Report 4515699-9 (Version None)
Quarter: 2004Q4

REPORT INFORMATION
  Report Type: 
  Country: None (occurrence: None)
  Receive Date: 20041118
  Receipt Date: 20041109
  Transmission Date: 20050328
  Serious: Yes (Hospitalization)
  Sender: FDA-Public Use
  Company Number: 200410823BCA

PATIENT
  Age: 34 Year
  Sex: Female
  Weight: 80 kg

DRUGS (13)
  1. GAMUNEX [Suspect]
     Indication: TRANSPLANT REJECTION
     Dosage: INTRAVENOUS
     Route: 042
     Dates: start: 20041005
  2. GAMUNEX [Suspect]
     Dosage: INTRAVENOUS
     Route: 042
     Dates: start: 20041005
  3. GAMUNEX [Suspect]
     Dosage: INTRAVENOUS
     Route: 042
     Dates: start: 20041006
  4. GAMUNEX [Suspect]
     Dosage: INTRAVENOUS
     Route: 042
     Dates: start: 20041007
  5. GAMUNEX [Suspect]
     Dosage: INTRAVENOUS
     Route: 042
     Dates: start: 20041008
  6. GAMUNEX [Suspect]
     Dosage: INTRAVENOUS
     Route: 042
     Dates: start: 20041010
  7. CYCLOSPORINE [Concomitant]
  8. LOPRESSOR [Concomitant]
  9. CELLCEPT [Concomitant]
  10. NIFEDIPINE [Concomitant]
  11. PREDNISONE [Concomitant]
  12. VALTREX [Concomitant]
  13. ARANESP [Concomitant]

REACTIONS (2)
  - BLOOD LACTATE DEHYDROGENASE DECREASED [None]
  - HAEMOLYSIS [None]
